FAERS Safety Report 13352101 (Version 1)
Quarter: 2017Q1

REPORT INFORMATION
  Report Type: Spontaneous
  Country: US (occurrence: US)
  Receive Date: 20170320
  Receipt Date: 20170320
  Transmission Date: 20170429
  Serious: No
  Sender: FDA-Public Use
  Company Number: US-SA-2016SA116668

PATIENT
  Age: 89 Year
  Sex: Female

DRUGS (1)
  1. NASACORT ALLERGY 24HR [Suspect]
     Active Substance: TRIAMCINOLONE ACETONIDE
     Indication: DYSPNOEA
     Dosage: DOSE: 60 SPRAY?FREQUENCY: 2 SPRAY IN EACH NOSTRIL?START DATE:4 OR 5, 6 WEEKS?AGO
     Route: 065

REACTIONS (1)
  - Oral pain [Unknown]
